FAERS Safety Report 9178591 (Version 1)
Quarter: 2013Q1

REPORT INFORMATION
  Report Type: Report from Study
  Country: AU (occurrence: AU)
  Receive Date: 20130321
  Receipt Date: 20130321
  Transmission Date: 20140127
  Serious: Yes (Other)
  Sender: FDA-Public Use
  Company Number: AU-ROCHE-1202347

PATIENT
  Sex: Female

DRUGS (5)
  1. ACTEMRA [Suspect]
     Indication: RHEUMATOID ARTHRITIS
     Route: 042
  2. ZOLOFT [Concomitant]
     Indication: DEPRESSION
     Route: 048
  3. IMODIUM [Concomitant]
     Indication: DIARRHOEA
     Dosage: 1-2 TABLETS DAILY
     Route: 048
  4. PANADEINE FORTE [Concomitant]
     Indication: PAIN
     Dosage: 1000 MG/30 MG DAILY
     Route: 048
  5. TRAMADOL [Concomitant]
     Route: 048

REACTIONS (7)
  - Back pain [Not Recovered/Not Resolved]
  - Groin pain [Not Recovered/Not Resolved]
  - Arthralgia [Not Recovered/Not Resolved]
  - Abdominal pain upper [Not Recovered/Not Resolved]
  - Muscle spasms [Not Recovered/Not Resolved]
  - Diarrhoea [Not Recovered/Not Resolved]
  - Colitis microscopic [Unknown]
